FAERS Safety Report 24079104 (Version 1)
Quarter: 2024Q3

REPORT INFORMATION
  Report Type: Spontaneous
  Country: US (occurrence: US)
  Receive Date: 20240711
  Receipt Date: 20240711
  Transmission Date: 20241016
  Serious: Yes (Life-Threatening, Hospitalization)
  Sender: MYLAN
  Company Number: US-MYLANLABS-2024M1063744

PATIENT
  Age: 29 Day

DRUGS (11)
  1. FOSPHENYTOIN [Suspect]
     Active Substance: FOSPHENYTOIN
     Indication: Status epilepticus
     Dosage: 20-MG PHENYTOIN EQUIVALENTS (PES)/KG
     Route: 065
  2. LORAZEPAM [Suspect]
     Active Substance: LORAZEPAM
     Indication: Status epilepticus
     Dosage: 0.1 MILLIGRAM/KILOGRAM
     Route: 065
  3. PHENOBARBITAL [Suspect]
     Active Substance: PHENOBARBITAL
     Indication: Status epilepticus
     Dosage: 10 MILLIGRAM/KILOGRAM
     Route: 042
  4. MIDAZOLAM [Suspect]
     Active Substance: MIDAZOLAM
     Indication: Status epilepticus
     Dosage: 0.1 MILLIGRAM/KILOGRAM, QH
     Route: 042
  5. MIDAZOLAM [Suspect]
     Active Substance: MIDAZOLAM
     Dosage: 0.9 MILLIGRAM/KILOGRAM, QH, OVER 16 HOURS
     Route: 042
  6. PENTOBARBITAL [Suspect]
     Active Substance: PENTOBARBITAL
     Indication: Status epilepticus
     Dosage: 1 MILLIGRAM/KILOGRAM, QH, INFUSION
     Route: 065
  7. PENTOBARBITAL [Suspect]
     Active Substance: PENTOBARBITAL
     Dosage: 2 MILLIGRAM/KILOGRAM, QH, INFUSION
     Route: 065
  8. PENTOBARBITAL [Suspect]
     Active Substance: PENTOBARBITAL
     Dosage: 10 MILLIGRAM/KILOGRAM, ON HOSPITAL DAYS?4 THROUGH 7
     Route: 042
  9. KETAMINE [Suspect]
     Active Substance: KETAMINE
     Indication: Status epilepticus
     Dosage: 1?MG/KG/DOSE, EACH ADMINISTERED AT AN INFUSION RATE OF 1?MG/KG/HR AND TITRATED TO A MAXIMUM RATE OF
     Route: 042
  10. LEVETIRACETAM [Concomitant]
     Active Substance: LEVETIRACETAM
     Indication: Status epilepticus
     Dosage: 30 MILLIGRAM/KILOGRAM, BID
     Route: 042
  11. LACOSAMIDE [Concomitant]
     Active Substance: LACOSAMIDE
     Indication: Status epilepticus
     Dosage: 3 MG/KG/DOSE
     Route: 048

REACTIONS (1)
  - Drug ineffective [Unknown]
